FAERS Safety Report 4812414-6 (Version None)
Quarter: 2005Q4

REPORT INFORMATION
  Report Type: 
  Country: None (occurrence: None)
  Receive Date: 20051028
  Receipt Date: 20050126
  Transmission Date: 20060501
  Serious: No
  Sender: FDA-Public Use
  Company Number: US-GLAXOSMITHKLINE-A0542452A

PATIENT
  Age: 83 Year
  Sex: Female
  Weight: 80 kg

DRUGS (6)
  1. ADVAIR DISKUS 100/50 [Suspect]
     Indication: CHRONIC OBSTRUCTIVE PULMONARY DISEASE
     Dosage: 1PUFF TWICE PER DAY
     Route: 055
     Dates: start: 20050125
  2. ALPRAZOLAM [Concomitant]
  3. HYDROCODONE [Concomitant]
     Route: 048
  4. ALBUTEROL [Concomitant]
  5. NEBULIZER [Concomitant]
  6. ATROVENT [Concomitant]
     Route: 065

REACTIONS (2)
  - DYSPHONIA [None]
  - PHARYNX DISCOMFORT [None]
